FAERS Safety Report 5998874-6 (Version None)
Quarter: 2008Q4

REPORT INFORMATION
  Report Type: 
  Country: None (occurrence: None)
  Receive Date: 20081213
  Receipt Date: 20080806
  Transmission Date: 20090506
  Serious: No
  Sender: FDA-Public Use
  Company Number: US-AMGEN-KDL294420

PATIENT
  Sex: Male

DRUGS (11)
  1. ENBREL [Suspect]
     Indication: ANKYLOSING SPONDYLITIS
     Route: 058
  2. GLYBURIDE [Concomitant]
  3. LOTRIMIN [Concomitant]
  4. TYLENOL (CAPLET) [Concomitant]
  5. MULTI-VITAMINS [Concomitant]
  6. ADVIL LIQUI-GELS [Concomitant]
  7. ALEVE [Concomitant]
  8. ASPIRIN [Concomitant]
  9. FLEXERIL [Concomitant]
     Dates: start: 20080714
  10. PROTONIX [Concomitant]
  11. METFORMIN HCL [Concomitant]

REACTIONS (2)
  - LATEX ALLERGY [None]
  - RASH [None]
